FAERS Safety Report 4351242-5 (Version None)
Quarter: 2004Q2

REPORT INFORMATION
  Report Type: 
  Country: None (occurrence: None)
  Receive Date: 20040428
  Receipt Date: 20040409
  Transmission Date: 20050107
  Serious: Yes (Other)
  Sender: FDA-Public Use
  Company Number: USA040362916

PATIENT
  Age: 85 Year
  Sex: Female
  Weight: 51 kg

DRUGS (8)
  1. FORTEO [Suspect]
     Indication: OSTEOPOROSIS
     Dosage: 20 UG/1 DAY
     Dates: start: 20040302, end: 20040324
  2. COUMADIN [Concomitant]
  3. PREDNISONE [Concomitant]
  4. GLUCOTROL [Concomitant]
  5. VASOTEC [Concomitant]
  6. GLUCOPHAGE [Concomitant]
  7. DIGOXIN [Concomitant]
  8. CARDIZEM [Concomitant]

REACTIONS (2)
  - DRUG INTERACTION POTENTIATION [None]
  - INTERNATIONAL NORMALISED RATIO INCREASED [None]
